FAERS Safety Report 17906156 (Version 1)
Quarter: 2020Q2

REPORT INFORMATION
  Report Type: Spontaneous
  Country: FR (occurrence: FR)
  Receive Date: 20200617
  Receipt Date: 20200617
  Transmission Date: 20200714
  Serious: Yes (Death)
  Sender: FDA-Public Use
  Company Number: FR-ACCORD-185543

PATIENT
  Age: 83 Year
  Sex: Male

DRUGS (3)
  1. FLUOROURACILE ACCORD [Suspect]
     Active Substance: FLUOROURACIL
     Indication: COLORECTAL CANCER
     Dosage: 8 TREATMENT
     Route: 042
     Dates: start: 20190902, end: 20200505
  2. LEVOFOLINATE ZENTIVA [Suspect]
     Active Substance: LEVOLEUCOVORIN CALCIUM
     Indication: COLORECTAL CANCER
     Dosage: 8 TREATMENT
     Route: 042
     Dates: start: 20190902, end: 20200505
  3. OXALIPLATINE ACCORD [Suspect]
     Active Substance: OXALIPLATIN
     Indication: COLORECTAL CANCER
     Dosage: 8 TREATMENT
     Route: 042
     Dates: start: 20190902, end: 20200505

REACTIONS (2)
  - Pulmonary fibrosis [Fatal]
  - Condition aggravated [Fatal]
